FAERS Safety Report 20447208 (Version 1)
Quarter: 2022Q1

REPORT INFORMATION
  Report Type: Spontaneous
  Country: US (occurrence: US)
  Receive Date: 20220209
  Receipt Date: 20220209
  Transmission Date: 20220423
  Serious: Yes (Other)
  Sender: FDA-Public Use
  Company Number: US-NOVARTISPH-NVSC2022US024689

PATIENT
  Sex: Female

DRUGS (2)
  1. STARLIX [Suspect]
     Active Substance: NATEGLINIDE
     Indication: Product used for unknown indication
     Dosage: 60 MG, QD
     Route: 065
  2. LEVEMIR [Concomitant]
     Active Substance: INSULIN DETEMIR
     Indication: Product used for unknown indication
     Dosage: UNK
     Route: 065

REACTIONS (4)
  - Drug dependence [Unknown]
  - Blood glucose abnormal [Unknown]
  - Incorrect dosage administered [Unknown]
  - Therapeutic response decreased [Unknown]
